FAERS Safety Report 12228066 (Version 1)
Quarter: 2016Q2

REPORT INFORMATION
  Report Type: Spontaneous
  Country: None (occurrence: RU)
  Receive Date: 20160401
  Receipt Date: 20160401
  Transmission Date: 20160815
  Serious: Yes (Hospitalization)
  Sender: FDA-Public Use
  Company Number: RU-TORRENT-00000015

PATIENT
  Age: 14 Year
  Sex: Male

DRUGS (1)
  1. BRAND NAME UNSPECIFY (TOPIRAMATE) [Suspect]
     Active Substance: TOPIRAMATE
     Indication: PRODUCT USED FOR UNKNOWN INDICATION
     Route: 048

REACTIONS (2)
  - Tic [None]
  - Tonic clonic movements [Recovering/Resolving]
